FAERS Safety Report 5991701-2 (Version None)
Quarter: 2008Q4

REPORT INFORMATION
  Report Type: 
  Country: None (occurrence: None)
  Receive Date: 20081202
  Receipt Date: 20071218
  Transmission Date: 20090506
  Serious: Yes (Other)
  Sender: FDA-Public Use
  Company Number: WAES 0708USA00296

PATIENT
  Age: 47 Year
  Sex: Female
  Weight: 104.3273 kg

DRUGS (4)
  1. FOSAMAX [Suspect]
     Indication: OSTEOPENIA
     Dosage: 70 MG/WKY/PO
     Route: 048
     Dates: start: 20050429, end: 20070201
  2. FOSAMAX [Suspect]
     Indication: OSTEOPOROSIS
     Dosage: 70 MG/WKY/PO
     Route: 048
     Dates: start: 20050429, end: 20070201
  3. MICARDIS [Concomitant]
  4. PLENDIL [Concomitant]

REACTIONS (6)
  - BENIGN NEOPLASM OF THYROID GLAND [None]
  - BLOOD CHOLESTEROL INCREASED [None]
  - BREAST DISORDER [None]
  - GOITRE [None]
  - OSTEONECROSIS [None]
  - WEIGHT INCREASED [None]
